FAERS Safety Report 11521128 (Version 1)
Quarter: 2015Q3

REPORT INFORMATION
  Report Type: Spontaneous
  Country: US (occurrence: US)
  Receive Date: 20150918
  Receipt Date: 20150918
  Transmission Date: 20151125
  Serious: Yes (Other)
  Sender: FDA-Public Use
  Company Number: US-ROCHE-697747

PATIENT
  Age: 49 Year
  Sex: Female

DRUGS (4)
  1. COPEGUS [Suspect]
     Active Substance: RIBAVIRIN
     Indication: HEPATITIS C
     Dosage: DIVIDED DOSES
     Route: 048
     Dates: start: 20100321, end: 20100829
  2. PEGASYS [Suspect]
     Active Substance: PEGINTERFERON ALFA-2A
     Indication: HEPATITIS C
     Dosage: FORM: PRE-FILLED SYRINGE, PFS, WEEK 7 OF THERAPY
     Route: 058
  3. PEGASYS [Suspect]
     Active Substance: PEGINTERFERON ALFA-2A
     Route: 058
     Dates: start: 20100510, end: 20100829
  4. MIDRIN [Concomitant]
     Active Substance: ACETAMINOPHEN\DICHLORALPHENAZONE\ISOMETHEPTENE
     Indication: MIGRAINE
     Route: 065

REACTIONS (15)
  - Dizziness [Unknown]
  - Headache [Recovering/Resolving]
  - Nasopharyngitis [Unknown]
  - Fatigue [Unknown]
  - Weight decreased [Unknown]
  - Rash [Recovering/Resolving]
  - Neutrophil count decreased [Not Recovered/Not Resolved]
  - Alopecia [Unknown]
  - Decreased appetite [Recovering/Resolving]
  - Insomnia [Recovering/Resolving]
  - White blood cell count decreased [Not Recovered/Not Resolved]
  - Pneumonia [Unknown]
  - Metrorrhagia [Unknown]
  - Red blood cell count decreased [Recovered/Resolved]
  - Platelet count decreased [Recovering/Resolving]

NARRATIVE: CASE EVENT DATE: 20100321
